FAERS Safety Report 6468254-8 (Version None)
Quarter: 2009Q4

REPORT INFORMATION
  Report Type: 
  Country: None (occurrence: None)
  Receive Date: 20091124
  Receipt Date: 20091109
  Transmission Date: 20100525
  Serious: Yes (Hospitalization)
  Sender: FDA-Public Use
  Company Number: US-JNJFOC-20091103163

PATIENT
  Age: 79 Year
  Sex: Male
  Weight: 73.9 kg

DRUGS (2)
  1. DECITABINE (DECITABINE) LYOPHILIZED POWDER [Suspect]
     Indication: ACUTE MYELOID LEUKAEMIA
     Dosage: 20 MG/M2, INTRAVENOUS ; 20 MG/M2, INTRAVENOUS ; 20 MG/M2, INTRAVENOUS ; 20 MG/M2, INTRAVENOUS
     Route: 042
     Dates: start: 20091029, end: 20091102
  2. DECITABINE (DECITABINE) LYOPHILIZED POWDER [Suspect]
     Indication: ACUTE MYELOID LEUKAEMIA
     Dosage: 20 MG/M2, INTRAVENOUS ; 20 MG/M2, INTRAVENOUS ; 20 MG/M2, INTRAVENOUS ; 20 MG/M2, INTRAVENOUS
     Route: 042
     Dates: start: 20090806

REACTIONS (10)
  - ATELECTASIS [None]
  - AXILLARY VEIN THROMBOSIS [None]
  - DIARRHOEA [None]
  - FEBRILE NEUTROPENIA [None]
  - HYPOPHAGIA [None]
  - LIVER FUNCTION TEST ABNORMAL [None]
  - RASH [None]
  - SUBCLAVIAN VEIN THROMBOSIS [None]
  - THROMBOSIS IN DEVICE [None]
  - VOMITING [None]
